FAERS Safety Report 8204833-5 (Version None)
Quarter: 2012Q1

REPORT INFORMATION
  Report Type: 
  Country: None (occurrence: None)
  Receive Date: 20120309
  Receipt Date: 20120227
  Transmission Date: 20120608
  Serious: Yes (Other)
  Sender: FDA-Public Use
  Company Number: 2012MA002666

PATIENT
  Sex: Male
  Weight: 2.25 kg

DRUGS (4)
  1. LOSARTAN POTASSIUM [Suspect]
     Indication: FOETAL EXPOSURE DURING PREGNANCY
     Dosage: 50 MG, QD, TRPL
     Route: 064
  2. METOPROLOL SUCCINATE [Concomitant]
  3. NIFEDIPINE [Concomitant]
  4. HYDROXYCHLOROQUINE SULFATE [Concomitant]

REACTIONS (4)
  - MATERNAL DRUGS AFFECTING FOETUS [None]
  - OLIGOHYDRAMNIOS [None]
  - FOETAL GROWTH RESTRICTION [None]
  - CAESAREAN SECTION [None]
